FAERS Safety Report 6183748-0 (Version None)
Quarter: 2009Q2

REPORT INFORMATION
  Report Type: 
  Country: None (occurrence: None)
  Receive Date: 20090508
  Receipt Date: 20090506
  Transmission Date: 20091009
  Serious: Yes (Other)
  Sender: FDA-Public Use
  Company Number: CA-ASTRAZENECA-2009UW11462

PATIENT
  Sex: Male

DRUGS (3)
  1. CRESTOR [Suspect]
     Indication: BLOOD CHOLESTEROL
     Route: 048
     Dates: start: 20080101
  2. METFORMIN HCL [Concomitant]
  3. MICARDIS [Concomitant]

REACTIONS (2)
  - PAIN IN EXTREMITY [None]
  - TENDONITIS [None]
